FAERS Safety Report 7163686-7 (Version None)
Quarter: 2010Q4

REPORT INFORMATION
  Report Type: 
  Country: None (occurrence: None)
  Receive Date: 20101215
  Receipt Date: 20100527
  Transmission Date: 20110411
  Serious: Yes (Other)
  Sender: FDA-Public Use
  Company Number: US-PFIZER INC-2010067676

PATIENT
  Sex: Male

DRUGS (8)
  1. LYRICA [Suspect]
     Indication: MERALGIA PARAESTHETICA
     Dosage: 75 MG, 2X/DAY
     Dates: start: 20100505
  2. ASPIRIN [Concomitant]
     Dosage: 81 MG, 1X/DAY
  3. HYDROCHLOROTHIAZIDE [Concomitant]
     Indication: BLOOD PRESSURE INCREASED
     Dosage: 12.5 MG, 1X/DAY
     Route: 048
  4. TOPROL-XL [Concomitant]
     Indication: HYPERTENSION
     Dosage: 25 MG, 1X/DAY
     Route: 048
  5. CRESTOR [Concomitant]
     Indication: BLOOD CHOLESTEROL INCREASED
     Dosage: 40 MG, 1X/DAY
     Route: 048
  6. NEXIUM [Concomitant]
     Indication: GASTROOESOPHAGEAL REFLUX DISEASE
     Dosage: 40 MG, 1X/DAY
     Route: 048
  7. CETIRIZINE [Concomitant]
     Indication: HYPERSENSITIVITY
     Dosage: 10 MG, 1X/DAY
     Route: 048
  8. NASONEX [Concomitant]
     Indication: SINUS DISORDER
     Dosage: 2 PUFFS TWO TIMES A DAY IN EACH NASAL
     Route: 045

REACTIONS (9)
  - BLOOD CHOLESTEROL INCREASED [None]
  - DIZZINESS [None]
  - DRY MOUTH [None]
  - HYPERTENSION [None]
  - HYPOACUSIS [None]
  - PARAESTHESIA [None]
  - SLUGGISHNESS [None]
  - TINNITUS [None]
  - VISION BLURRED [None]
